FAERS Safety Report 6269760-1 (Version None)
Quarter: 2009Q3

REPORT INFORMATION
  Report Type: 
  Country: None (occurrence: None)
  Receive Date: 20090716
  Receipt Date: 20090709
  Transmission Date: 20100115
  Serious: Yes (Hospitalization)
  Sender: FDA-Public Use
  Company Number: US-JNJFOC-20090703647

PATIENT
  Sex: Male
  Weight: 68.04 kg

DRUGS (5)
  1. FENTANYL TRANSDERMAL SYSTEM [Suspect]
     Indication: BACK PAIN
     Route: 062
  2. FENTANYL TRANSDERMAL SYSTEM [Suspect]
     Indication: BACK PAIN
     Route: 062
  3. DURAGESIC-100 [Suspect]
     Indication: BACK PAIN
     Route: 062
  4. NEURONTIN [Suspect]
     Indication: NERVE INJURY
     Dosage: 600MG 2 CAPSULES
     Route: 048
  5. OXYCODONE [Concomitant]
     Indication: BREAKTHROUGH PAIN
     Dosage: 2 TABLETS EVERY 4 TO 6 HOURS AS NEEDED
     Route: 048

REACTIONS (9)
  - APPLICATION SITE RASH [None]
  - BACK INJURY [None]
  - BACK PAIN [None]
  - DERMATITIS CONTACT [None]
  - GROIN PAIN [None]
  - INSOMNIA [None]
  - MUSCULOSKELETAL PAIN [None]
  - NEURALGIA [None]
  - PAIN IN EXTREMITY [None]
